FAERS Safety Report 17538931 (Version 5)
Quarter: 2020Q2

REPORT INFORMATION
  Report Type: Spontaneous
  Country: US (occurrence: US)
  Receive Date: 20200313
  Receipt Date: 20200420
  Transmission Date: 20200713
  Serious: No
  Sender: FDA-Public Use
  Company Number: US-JNJFOC-20200315271

PATIENT
  Age: 51 Year
  Sex: Male
  Weight: 88.08 kg

DRUGS (2)
  1. STELARA [Suspect]
     Active Substance: USTEKINUMAB
     Indication: PSORIASIS
     Route: 058
     Dates: start: 2018
  2. STELARA [Suspect]
     Active Substance: USTEKINUMAB

REACTIONS (10)
  - Lacrimation increased [Not Recovered/Not Resolved]
  - Hernia [Unknown]
  - Drug ineffective [Unknown]
  - Vision blurred [Not Recovered/Not Resolved]
  - Syringe issue [Unknown]
  - Product dose omission [Unknown]
  - Device malfunction [Unknown]
  - Accidental exposure to product [Unknown]
  - Psoriasis [Unknown]
  - Product use complaint [Unknown]

NARRATIVE: CASE EVENT DATE: 202003
